FAERS Safety Report 6166524-4 (Version None)
Quarter: 2009Q2

REPORT INFORMATION
  Report Type: 
  Country: None (occurrence: None)
  Receive Date: 20090422
  Receipt Date: 20090402
  Transmission Date: 20091009
  Serious: Yes (Hospitalization, Other)
  Sender: FDA-Public Use
  Company Number: JPI-P-006339

PATIENT
  Age: 46 Year
  Sex: Male
  Weight: 88.4514 kg

DRUGS (10)
  1. XYREM [Suspect]
     Indication: INSOMNIA
     Dosage: 6 GM (3 GM, 2 IN 1 D), ORAL; 9 GM (4.5 GM, 2 IN 1 D), ORAL
     Route: 048
     Dates: start: 20090122, end: 20090201
  2. XYREM [Suspect]
     Indication: LYME DISEASE
     Dosage: 6 GM (3 GM, 2 IN 1 D), ORAL; 9 GM (4.5 GM, 2 IN 1 D), ORAL
     Route: 048
     Dates: start: 20090122, end: 20090201
  3. XYREM [Suspect]
     Indication: INSOMNIA
     Dosage: 6 GM (3 GM, 2 IN 1 D), ORAL; 9 GM (4.5 GM, 2 IN 1 D), ORAL
     Route: 048
     Dates: start: 20090201, end: 20090326
  4. XYREM [Suspect]
     Indication: LYME DISEASE
     Dosage: 6 GM (3 GM, 2 IN 1 D), ORAL; 9 GM (4.5 GM, 2 IN 1 D), ORAL
     Route: 048
     Dates: start: 20090201, end: 20090326
  5. UNSPECIFIED ANTIBIOTICS [Suspect]
     Indication: DRUG USE FOR UNKNOWN INDICATION
  6. CEFTRIAXONE [Concomitant]
  7. DOXYCYCLINE [Concomitant]
  8. MINOCYCLINE HCL [Concomitant]
  9. PENICILLIN G POTASSIUM [Concomitant]
  10. NATURAL MEDICINES [Concomitant]

REACTIONS (14)
  - BLOOD TESTOSTERONE DECREASED [None]
  - CONCUSSION [None]
  - CONVULSION [None]
  - FALL [None]
  - FEAR [None]
  - FUNGAL INFECTION [None]
  - INCOHERENT [None]
  - LIMB INJURY [None]
  - LOSS OF CONSCIOUSNESS [None]
  - MENTAL DISORDER [None]
  - RIB FRACTURE [None]
  - SKIN LACERATION [None]
  - SLEEP DISORDER [None]
  - VOMITING [None]
